FAERS Safety Report 8229523-4 (Version None)
Quarter: 2012Q1

REPORT INFORMATION
  Report Type: 
  Country: None (occurrence: None)
  Receive Date: 20120322
  Receipt Date: 20120316
  Transmission Date: 20120608
  Serious: Yes (Other)
  Sender: FDA-Public Use
  Company Number: CHPA2012US004988

PATIENT
  Age: 77 Year
  Sex: Female

DRUGS (1)
  1. VOLTAREN [Suspect]
     Indication: STREPTOCOCCAL INFECTION
     Dosage: 1 G, QID
     Route: 061
     Dates: start: 20110801, end: 20120201

REACTIONS (2)
  - DRUG INEFFECTIVE FOR UNAPPROVED INDICATION [None]
  - CHRONIC MYELOMONOCYTIC LEUKAEMIA [None]
